FAERS Safety Report 6045245-2 (Version None)
Quarter: 2009Q1

REPORT INFORMATION
  Report Type: 
  Country: None (occurrence: None)
  Receive Date: 20090121
  Receipt Date: 20090106
  Transmission Date: 20090719
  Serious: Yes (Disabling, Other)
  Sender: FDA-Public Use
  Company Number: PHHY2008CA27940

PATIENT
  Age: 59 Year
  Sex: Male

DRUGS (11)
  1. RASILEZ [Suspect]
     Indication: HYPERTENSION
     Dosage: 150 MG, QD
     Route: 048
     Dates: start: 20080925, end: 20081104
  2. ALTACE [Concomitant]
     Dosage: 10 MG ONCE DAILY
     Route: 048
  3. NORVASC [Concomitant]
     Dosage: 10 MG ONCE DAILY
     Route: 048
  4. NITROGLYCERIN [Concomitant]
     Dosage: 0.4 PER MONTH
  5. METOPROLOL TARTRATE [Concomitant]
     Dosage: 25 BID
     Route: 048
  6. COZAAR [Concomitant]
     Dosage: 0.4 ONCE DAILY
     Route: 048
  7. GLICLAZIDE [Concomitant]
     Dosage: 30 ONCE DAILY
     Route: 048
  8. EZETROL [Concomitant]
     Dosage: 10 ONCE DAILY
     Route: 048
  9. FLOVENT [Concomitant]
     Dosage: 250 BID
     Route: 048
  10. BRICANYL [Concomitant]
     Dosage: UNK
  11. ZOPICLONE [Concomitant]
     Dosage: ONCE DAILY
     Route: 048

REACTIONS (4)
  - BACK PAIN [None]
  - BLOOD URINE PRESENT [None]
  - BONE PAIN [None]
  - KIDNEY INFECTION [None]
